FAERS Safety Report 5378758-7 (Version None)
Quarter: 2007Q3

REPORT INFORMATION
  Report Type: 
  Country: None (occurrence: None)
  Receive Date: 20070705
  Receipt Date: 20070629
  Transmission Date: 20080115
  Serious: Yes (Death)
  Sender: FDA-Public Use
  Company Number: B0477631A

PATIENT
  Age: 50 Year
  Sex: Male

DRUGS (2)
  1. ALBENDAZOLE [Suspect]
     Route: 048
  2. ANTI-TUBERCULOSIS MEDICATION [Concomitant]
     Indication: TUBERCULOSIS

REACTIONS (3)
  - DIARRHOEA [None]
  - MYOCARDIAL INFARCTION [None]
  - VOMITING [None]
